FAERS Safety Report 10399858 (Version 10)
Quarter: 2015Q2

REPORT INFORMATION
  Report Type: Report from Study
  Country: AR (occurrence: AR)
  Receive Date: 20140821
  Receipt Date: 20150413
  Transmission Date: 20150821
  Serious: Yes (Hospitalization, Other)
  Sender: FDA-Public Use
  Company Number: AR-AMGEN-ARGCT2014031253

PATIENT
  Age: 68 Year
  Sex: Female

DRUGS (17)
  1. OMEPRAZOL                          /00661201/ [Concomitant]
     Active Substance: OMEPRAZOLE
     Dosage: 20 MG (20 MG,QD)
     Route: 048
     Dates: start: 20060511
  2. ETANERCEPT [Suspect]
     Active Substance: ETANERCEPT
     Dosage: 50 MG, WEEKLY (1 IN 1 WK)
     Route: 058
     Dates: start: 20140718
  3. NAPROXEN. [Concomitant]
     Active Substance: NAPROXEN
     Dosage: 500 MG (500 MG,QD)
     Route: 048
     Dates: start: 20130402
  4. ETANERCEPT [Suspect]
     Active Substance: ETANERCEPT
     Dosage: 50 MG,1 IN 1 WK
     Route: 058
     Dates: start: 20140627
  5. METHOTREXATE [Concomitant]
     Active Substance: METHOTREXATE
     Dosage: 15 MG,1 IN 1 WK
     Route: 048
     Dates: start: 20110810, end: 20130214
  6. PREDNISONE. [Concomitant]
     Active Substance: PREDNISONE
     Dosage: 5 MG (5 MG,DAILY)
     Route: 048
     Dates: start: 20140204, end: 2014
  7. ALPRAZOLAM. [Concomitant]
     Active Substance: ALPRAZOLAM
     Dosage: 0.5 MG,QD
     Route: 048
     Dates: start: 20111226
  8. FOLIC ACID. [Concomitant]
     Active Substance: FOLIC ACID
     Dosage: 5 MG, UNK
     Route: 048
     Dates: start: 20050419
  9. PREDNISONE. [Concomitant]
     Active Substance: PREDNISONE
     Dosage: 2.5 MG (2.5 MG,DAILY)
     Route: 048
     Dates: start: 20131206
  10. PREGABALINE [Concomitant]
     Active Substance: PREGABALIN
     Dosage: 75 MG, (1 IN 1 TRIMESTER)
     Route: 048
     Dates: start: 20130429
  11. NAPROXEN. [Concomitant]
     Active Substance: NAPROXEN
     Dosage: 750 MG (750 MG,QD)
     Route: 048
     Dates: start: 20120802, end: 20130214
  12. NAPROXEN. [Concomitant]
     Active Substance: NAPROXEN
     Dosage: 250 MG (250 MG,QD)
     Route: 048
     Dates: start: 20130215, end: 20130401
  13. PREDNISONE. [Concomitant]
     Active Substance: PREDNISONE
     Dosage: 3.75 MG (3.75 MG,DAILY)
     Route: 048
     Dates: start: 20131025, end: 20131105
  14. ETANERCEPT [Suspect]
     Active Substance: ETANERCEPT
     Indication: RHEUMATOID ARTHRITIS
     Dosage: DATE OF MOST RECENT DOSE PRIOR TO SAE: 04/APR/2014. LAST DOSE OF ETANARCEPT WAS 50 MG (1 IN 1 WK)
     Route: 058
     Dates: start: 20120831
  15. METHOTREXATE [Concomitant]
     Active Substance: METHOTREXATE
     Dosage: 10 MG,1 IN 1 WK
     Route: 048
     Dates: start: 20130215
  16. LOSARTAN [Concomitant]
     Active Substance: LOSARTAN
     Dosage: 50 MG (50 MG,QD)
     Route: 048
     Dates: start: 20090724
  17. PREDNISONE. [Concomitant]
     Active Substance: PREDNISONE
     Dosage: 5 MG (5 MG,DAILY)
     Route: 048
     Dates: start: 20130910, end: 20131024

REACTIONS (3)
  - Cellulitis staphylococcal [Recovered/Resolved]
  - Cellulitis [Recovered/Resolved]
  - Skin ulcer [Recovered/Resolved]

NARRATIVE: CASE EVENT DATE: 20140408
